FAERS Safety Report 16292246 (Version 3)
Quarter: 2019Q3

REPORT INFORMATION
  Report Type: Report from Study
  Country: CA (occurrence: CA)
  Receive Date: 20190509
  Receipt Date: 20190729
  Transmission Date: 20191004
  Serious: Yes (Other)
  Sender: FDA-Public Use
  Company Number: CA-GLAXOSMITHKLINE-CA2019GSK076210

PATIENT
  Sex: Female
  Weight: 55 kg

DRUGS (6)
  1. MONTELUKAST [Suspect]
     Active Substance: MONTELUKAST SODIUM
     Indication: PRODUCT USED FOR UNKNOWN INDICATION
     Dosage: 10 MG, UNK
  2. ZENHALE [Suspect]
     Active Substance: FORMOTEROL FUMARATE\MOMETASONE FUROATE
     Indication: PRODUCT USED FOR UNKNOWN INDICATION
     Dosage: 2 PUFF(S), BID
  3. SINGULAIR [Suspect]
     Active Substance: MONTELUKAST SODIUM
     Indication: PRODUCT USED FOR UNKNOWN INDICATION
     Dosage: UNK
     Dates: end: 201903
  4. SPIRIVA RESPIMAT [Suspect]
     Active Substance: TIOTROPIUM BROMIDE
     Indication: PRODUCT USED FOR UNKNOWN INDICATION
     Dosage: 2 PUFF(S), 1D
  5. SALBUTAMOL SULPHATE [Suspect]
     Active Substance: ALBUTEROL SULFATE
     Indication: ASTHMA
     Dosage: UNK UNK, PRN
     Dates: start: 20190517
  6. ZENHALE [Suspect]
     Active Substance: FORMOTEROL FUMARATE\MOMETASONE FUROATE
     Dosage: 2 PUFF(S), TID

REACTIONS (20)
  - Glaucoma [Unknown]
  - Stress [Unknown]
  - Asthma [Unknown]
  - Eosinophilia [Unknown]
  - Cough [Unknown]
  - Wheezing [Unknown]
  - Productive cough [Unknown]
  - Sinus congestion [Unknown]
  - Nasopharyngitis [Unknown]
  - Dizziness [Unknown]
  - Pulmonary congestion [Unknown]
  - Bronchial disorder [Not Recovered/Not Resolved]
  - Obstructive airways disorder [Unknown]
  - Ocular hyperaemia [Unknown]
  - Eye disorder [Unknown]
  - Nasal congestion [Unknown]
  - Blood count abnormal [Unknown]
  - Therapeutic product effect incomplete [Unknown]
  - Respiratory tract congestion [Unknown]
  - Dyspnoea [Unknown]
